FAERS Safety Report 18305314 (Version 1)
Quarter: 2020Q3

REPORT INFORMATION
  Report Type: Spontaneous
  Country: US (occurrence: US)
  Receive Date: 20200923
  Receipt Date: 20200923
  Transmission Date: 20201103
  Serious: No
  Sender: FDA-Public Use
  Company Number: US-JNJFOC-20200937987

PATIENT
  Sex: Female

DRUGS (1)
  1. CONCERTA [Suspect]
     Active Substance: METHYLPHENIDATE HYDROCHLORIDE
     Indication: PRODUCT USED FOR UNKNOWN INDICATION
     Route: 048
     Dates: start: 202006

REACTIONS (5)
  - Anxiety [Unknown]
  - Disturbance in attention [Unknown]
  - Therapeutic product effect decreased [Unknown]
  - Panic attack [Unknown]
  - Depression [Unknown]

NARRATIVE: CASE EVENT DATE: 202009
